FAERS Safety Report 12453482 (Version 1)
Quarter: 2016Q2

REPORT INFORMATION
  Report Type: Spontaneous
  Country: US (occurrence: US)
  Receive Date: 20160609
  Receipt Date: 20160609
  Transmission Date: 20160815
  Serious: No
  Sender: FDA-Public Use
  Company Number: US-TEVA-664300USA

PATIENT
  Age: 57 Year
  Sex: Female
  Weight: 80.81 kg

DRUGS (1)
  1. NUVIGIL [Suspect]
     Active Substance: ARMODAFINIL
     Indication: SLEEP APNOEA SYNDROME
     Dosage: TAKE HALF TABLET ONCE A DAY
     Route: 065
     Dates: start: 201605

REACTIONS (4)
  - Alanine aminotransferase increased [Unknown]
  - Gastric disorder [Unknown]
  - Feeling jittery [Unknown]
  - Product use issue [Unknown]

NARRATIVE: CASE EVENT DATE: 201605
